FAERS Safety Report 4719293-6 (Version None)
Quarter: 2005Q3

REPORT INFORMATION
  Report Type: 
  Country: None (occurrence: None)
  Receive Date: 20050721
  Receipt Date: 20040929
  Transmission Date: 20060218
  Serious: No
  Sender: FDA-Public Use
  Company Number: US-GLAXOSMITHKLINE-A0527788A

PATIENT
  Age: 64 Year
  Sex: Female

DRUGS (6)
  1. MALARONE [Suspect]
     Indication: MALARIA PROPHYLAXIS
     Dosage: 1TAB PER DAY
     Route: 048
     Dates: start: 20040909, end: 20040929
  2. PRINIVIL [Concomitant]
  3. EVISTA [Concomitant]
  4. PROTONIX [Concomitant]
  5. VIOXX [Concomitant]
  6. ASTELIN [Concomitant]

REACTIONS (1)
  - ORAL SOFT TISSUE DISORDER [None]
